FAERS Safety Report 18391462 (Version 6)
Quarter: 2022Q4

REPORT INFORMATION
  Report Type: Spontaneous
  Country: IT (occurrence: IT)
  Receive Date: 20201015
  Receipt Date: 20221230
  Transmission Date: 20230112
  Serious: Yes (Other)
  Sender: FDA-Public Use
  Company Number: IT-ROCHE-2651060

PATIENT
  Age: 59 Year
  Sex: Female
  Weight: 68 kg

DRUGS (11)
  1. CARBOPLATIN [Suspect]
     Active Substance: CARBOPLATIN
     Indication: Breast cancer
     Dosage: 274 MG, LAST DOSE BEFORE SAE 25AUG2020, NO OF COURSE 2
     Route: 042
     Dates: start: 20200804
  2. TRASTUZUMAB [Suspect]
     Active Substance: TRASTUZUMAB
     Indication: Breast cancer
     Dosage: 544 MG
     Route: 042
     Dates: start: 20200728
  3. TRASTUZUMAB [Suspect]
     Active Substance: TRASTUZUMAB
     Dosage: LAST DOSE BEFORE SAE ON 25AUG2020, NO OF COURSES 2
     Route: 042
     Dates: start: 20200804
  4. ATEZOLIZUMAB [Suspect]
     Active Substance: ATEZOLIZUMAB
     Indication: Breast cancer
     Dosage: 1200 MG, LAST DOSE BEFORE SAE 25AUG2020, NO OF COURSES 2
     Route: 042
     Dates: start: 20200728
  5. TAXOL [Suspect]
     Active Substance: PACLITAXEL
     Indication: Breast cancer
     Dosage: LAST DOSE BEFORE SAE 25AUG2020
     Route: 042
     Dates: start: 20180804
  6. PERTUZUMAB [Suspect]
     Active Substance: PERTUZUMAB
     Indication: Breast cancer
     Dosage: 420 MG, LAST DOSE BEFORE SAE WAS 25AUG2020, NO OF COURSES 2
     Route: 042
     Dates: start: 20200804
  7. PERTUZUMAB [Suspect]
     Active Substance: PERTUZUMAB
     Dosage: 800 MG, LAST DOSE BEFORE SAE 25AUG2020
     Route: 042
     Dates: start: 20200728
  8. ZOFRAN [Concomitant]
     Active Substance: ONDANSETRON HYDROCHLORIDE
     Dosage: UNK
     Route: 042
     Dates: start: 20200728, end: 20200728
  9. HYDROCORTISONE SODIUM SUCCINATE [Concomitant]
     Active Substance: HYDROCORTISONE SODIUM SUCCINATE
     Dosage: 500 MG
     Dates: start: 20200728, end: 20200728
  10. ACETAMINOPHEN [Concomitant]
     Active Substance: ACETAMINOPHEN
     Dosage: 1000 MG
     Dates: start: 20200728, end: 20200728
  11. TRIMETON [Concomitant]
     Active Substance: CHLORPHENIRAMINE MALEATE
     Dosage: UNK
     Dates: start: 20200804, end: 20200804

REACTIONS (4)
  - Electrocardiogram repolarisation abnormality [Unknown]
  - Infusion related reaction [Recovered/Resolved]
  - Infusion related reaction [Recovered/Resolved]
  - Infusion related reaction [Recovered/Resolved]

NARRATIVE: CASE EVENT DATE: 20200728
